FAERS Safety Report 11288791 (Version 1)
Quarter: 2015Q3

REPORT INFORMATION
  Report Type: Spontaneous
  Country: US (occurrence: US)
  Receive Date: 20150721
  Receipt Date: 20150721
  Transmission Date: 20151125
  Serious: No
  Sender: FDA-Public Use
  Company Number: US-UNITED THERAPEUTICS-UNT-2014-012080

PATIENT
  Sex: Male
  Weight: 102.68 kg

DRUGS (2)
  1. REMODULIN [Suspect]
     Active Substance: TREPROSTINIL
     Indication: PULMONARY HYPERTENSION
     Dosage: 0.011 ?G/KG/MIN, CONTINUING
     Route: 058
     Dates: start: 20141024
  2. REVATIO [Concomitant]
     Active Substance: SILDENAFIL CITRATE
     Indication: PRODUCT USED FOR UNKNOWN INDICATION

REACTIONS (7)
  - Infusion site erythema [Unknown]
  - Infusion site pain [Unknown]
  - Drug intolerance [Unknown]
  - Infusion site haemorrhage [Unknown]
  - Dry skin [Unknown]
  - Infusion site infection [Unknown]
  - Injection site discharge [Unknown]

NARRATIVE: CASE EVENT DATE: 2014
